FAERS Safety Report 5398724-5 (Version None)
Quarter: 2007Q3

REPORT INFORMATION
  Report Type: 
  Country: None (occurrence: None)
  Receive Date: 20070726
  Receipt Date: 20060718
  Transmission Date: 20080115
  Serious: No
  Sender: FDA-Public Use
  Company Number: US-AMGEN-KDL186834

PATIENT
  Age: 70 Year
  Sex: Female

DRUGS (9)
  1. PROCRIT [Suspect]
     Indication: ANAEMIA
     Route: 058
     Dates: start: 20060601
  2. ENBREL [Suspect]
     Dates: start: 20041001
  3. METHOTREXATE [Concomitant]
  4. ZYRTEC [Concomitant]
  5. NORVASC [Concomitant]
  6. ATENOLOL [Concomitant]
  7. BENICAR [Concomitant]
  8. HYDROCHLOROTHIAZIDE [Concomitant]
  9. CRESTOR [Concomitant]

REACTIONS (1)
  - RASH ERYTHEMATOUS [None]
